FAERS Safety Report 16575529 (Version 5)
Quarter: 2021Q2

REPORT INFORMATION
  Report Type: Spontaneous
  Country: US (occurrence: US)
  Receive Date: 20190716
  Receipt Date: 20210528
  Transmission Date: 20210716
  Serious: Yes (Other)
  Sender: FDA-Public Use
  Company Number: US-ELI_LILLY_AND_COMPANY-US201907007254

PATIENT
  Sex: Male

DRUGS (5)
  1. LANTUS [Concomitant]
     Active Substance: INSULIN GLARGINE
     Indication: PRODUCT USED FOR UNKNOWN INDICATION
  2. HUMALOG [Suspect]
     Active Substance: INSULIN LISPRO
     Dosage: UNK, DAILY (PRN)
     Route: 058
  3. HUMALOG [Suspect]
     Active Substance: INSULIN LISPRO
     Indication: TYPE 2 DIABETES MELLITUS
     Dosage: UNK, DAILY (PRN)
     Route: 058
  4. VITA B12 [VITAMIN B12 NOS] [Concomitant]
     Indication: PRODUCT USED FOR UNKNOWN INDICATION
  5. METFORMIN [Concomitant]
     Active Substance: METFORMIN HYDROCHLORIDE
     Indication: PRODUCT USED FOR UNKNOWN INDICATION

REACTIONS (10)
  - Nervousness [Recovering/Resolving]
  - Blood glucose increased [Recovered/Resolved]
  - Cognitive disorder [Unknown]
  - Feeding disorder [Recovering/Resolving]
  - Thinking abnormal [Not Recovered/Not Resolved]
  - Craniocerebral injury [Not Recovered/Not Resolved]
  - Diabetic wound [Not Recovered/Not Resolved]
  - Blood glucose increased [Recovering/Resolving]
  - Stress [Not Recovered/Not Resolved]
  - Carbohydrate metabolism disorder [Not Recovered/Not Resolved]

NARRATIVE: CASE EVENT DATE: 2019
